FAERS Safety Report 18283164 (Version 1)
Quarter: 2020Q3

REPORT INFORMATION
  Report Type: Spontaneous
  Country: US (occurrence: US)
  Receive Date: 20200918
  Receipt Date: 20200918
  Transmission Date: 20201103
  Serious: Yes (Death)
  Sender: FDA-Public Use
  Company Number: US-VERTEX PHARMACEUTICALS-2020-018567

PATIENT

DRUGS (8)
  1. GABAPENTIN. [Concomitant]
     Active Substance: GABAPENTIN
  2. AMITIZA [Concomitant]
     Active Substance: LUBIPROSTONE
  3. LORAZEPAM. [Concomitant]
     Active Substance: LORAZEPAM
  4. DULOXETINE. [Concomitant]
     Active Substance: DULOXETINE
  5. PULMOZYME [Concomitant]
     Active Substance: DORNASE ALFA
  6. ALBUTEROL [SALBUTAMOL] [Concomitant]
     Active Substance: ALBUTEROL
  7. TRIKAFTA [Suspect]
     Active Substance: ELEXACAFTOR\IVACAFTOR\TEZACAFTOR
     Indication: CYSTIC FIBROSIS
     Dosage: 2 TAB100 MG ELEXACAFTOR/ 50 MG TEZACAFTOR/ 75 MG IVACAFTOR AM; 1 TAB150MG IVACAFTOR PM
     Route: 048
     Dates: start: 201911
  8. NIFEDIPINE. [Concomitant]
     Active Substance: NIFEDIPINE

REACTIONS (1)
  - Infection [Fatal]
